FAERS Safety Report 9463642 (Version 2)
Quarter: 2013Q3

REPORT INFORMATION
  Report Type: Report from Study
  Country: MX (occurrence: MX)
  Receive Date: 20130819
  Receipt Date: 20130819
  Transmission Date: 20140515
  Serious: Yes (Other)
  Sender: FDA-Public Use
  Company Number: PHHY2011MX54023

PATIENT
  Age: 96 Year
  Sex: Female

DRUGS (2)
  1. ACLASTA [Suspect]
     Indication: OSTEOPOROSIS
     Dosage: 1 DF, PER YEAR
     Route: 042
     Dates: start: 20110407
  2. CALTRATE [Concomitant]
     Dosage: 1 DF, DAILY
     Route: 048
     Dates: start: 2012

REACTIONS (5)
  - Breast cancer [Not Recovered/Not Resolved]
  - Tooth injury [Recovering/Resolving]
  - Bone pain [Recovered/Resolved]
  - Diarrhoea [Recovered/Resolved]
  - Onychoclasis [Recovered/Resolved]
